FAERS Safety Report 8842365 (Version 1)
Quarter: 2012Q4

REPORT INFORMATION
  Report Type: 
  Country: BR (occurrence: BR)
  Receive Date: 20121016
  Receipt Date: 20121016
  Transmission Date: 20130627
  Serious: Yes (Other)
  Sender: FDA-Public Use
  Company Number: PHHY2012BR080669

PATIENT
  Age: 79 Year

DRUGS (20)
  1. GALVUS [Suspect]
     Dosage: 50 mg, BID
     Dates: start: 201111
  2. GALVUS [Suspect]
     Dosage: 50 mg, UNK
     Dates: start: 201111
  3. DIOVAN HCT [Suspect]
     Dosage: 1 DF (160 mg vals and 12.5 mg HCTZ), QD
     Dates: start: 200807
  4. HYDROCHLOROTHIAZIDE [Suspect]
     Dosage: 12.5 mg, UNK
     Dates: start: 201110
  5. VALSARTAN [Suspect]
     Dosage: 160 mg, UNK
     Dates: start: 201110
  6. VILDAGLIPTIN [Suspect]
     Dates: start: 201110
  7. ATORVASTATIN [Suspect]
     Dosage: 20 mg, UNK
     Dates: start: 201110
  8. INDAPAMIDE [Suspect]
     Dosage: 1.5 mg, UNK
     Dates: start: 201110
  9. ASPIRINA [Suspect]
     Dosage: 100 mg, UNK
     Dates: start: 201110
  10. CITALOR [Suspect]
     Dates: start: 201208
  11. ACETYLSALICYLIC ACID [Suspect]
     Dates: start: 201111
  12. NATRILIX [Suspect]
     Dosage: 1.5 mg, daily
     Dates: start: 201005
  13. AMARYL [Concomitant]
     Dates: start: 199703
  14. ATENOLOL [Concomitant]
     Dosage: 50 mg, UNK
     Route: 048
     Dates: start: 199703
  15. CALTREN [Concomitant]
     Dates: start: 199703
  16. SIMVASTATIN [Concomitant]
     Dosage: 20 mg, UNK
     Dates: start: 199703
  17. AAS [Concomitant]
     Dosage: UNK
     Dates: start: 199703
  18. ACTOS [Concomitant]
     Dates: start: 200106
  19. LANTUS [Concomitant]
     Dates: start: 200410
  20. HUMALOG MIX [Concomitant]
     Dosage: Theree times
     Dates: start: 200410

REACTIONS (3)
  - Blood glucose increased [Recovering/Resolving]
  - Blood urea increased [Recovering/Resolving]
  - Glycosylated haemoglobin increased [Recovering/Resolving]
